FAERS Safety Report 5162344-8 (Version None)
Quarter: 2006Q4

REPORT INFORMATION
  Report Type: 
  Country: None (occurrence: None)
  Receive Date: 20061130
  Receipt Date: 20061120
  Transmission Date: 20070319
  Serious: Yes (Other)
  Sender: FDA-Public Use
  Company Number: US-ABBOTT-06P-163-0351155-00

PATIENT
  Age: 34 Year
  Sex: Female

DRUGS (4)
  1. DEPAKOTE [Suspect]
     Indication: EPILEPSY
     Dates: start: 20031225, end: 20040801
  2. DEPAKOTE [Suspect]
     Dates: start: 20040801, end: 20040909
  3. CARBAMAZEPINE [Suspect]
     Indication: EPILEPSY
     Dates: start: 20031225, end: 20040801
  4. CARBAMAZEPINE [Suspect]
     Dates: start: 20040801, end: 20040909

REACTIONS (1)
  - PREGNANCY INDUCED HYPERTENSION [None]
